FAERS Safety Report 20124338 (Version 1)
Quarter: 2021Q4

REPORT INFORMATION
  Report Type: Spontaneous
  Country: FR (occurrence: FR)
  Receive Date: 20211129
  Receipt Date: 20211129
  Transmission Date: 20220303
  Serious: Yes (Death)
  Sender: FDA-Public Use
  Company Number: None

PATIENT
  Age: 29 Year
  Sex: Male

DRUGS (8)
  1. DIAZEPAM [Suspect]
     Active Substance: DIAZEPAM
     Dosage: UNSPECIFIED
     Route: 065
     Dates: end: 202110
  2. BENZOYLECGONINE [Suspect]
     Active Substance: BENZOYLECGONINE
     Dosage: UNSPECIFIED
     Route: 065
     Dates: end: 202110
  3. METHADONE HYDROCHLORIDE [Suspect]
     Active Substance: METHADONE HYDROCHLORIDE
     Dosage: UNSPECIFIED
     Route: 065
     Dates: end: 202110
  4. TEMAZEPAM [Suspect]
     Active Substance: TEMAZEPAM
     Dosage: UNSPECIFIED
     Route: 065
     Dates: end: 202110
  5. NORDAZEPAM [Suspect]
     Active Substance: NORDAZEPAM
     Dosage: UNSPECIFIED
     Route: 065
     Dates: end: 202110
  6. 11-NOR-9-CARBOXY-.DELTA-9-TETRAHYDROCANNABINOL [Suspect]
     Active Substance: 11-NOR-9-CARBOXY-.DELTA-9-TETRAHYDROCANNABINOL
     Dosage: UNSPECIFIED
     Route: 065
     Dates: end: 202110
  7. COCAETHYLENE [Suspect]
     Active Substance: COCAETHYLENE
     Dosage: UNSPECIFIED
     Route: 065
     Dates: end: 202110
  8. ALCOHOL [Suspect]
     Active Substance: ALCOHOL
     Dosage: UNSPECIFIED
     Route: 065
     Dates: end: 202110

REACTIONS (2)
  - Drug abuse [Fatal]
  - Asphyxia [Fatal]

NARRATIVE: CASE EVENT DATE: 20211001
